FAERS Safety Report 14196539 (Version 1)
Quarter: 2017Q4

REPORT INFORMATION
  Report Type: Spontaneous
  Country: US (occurrence: US)
  Receive Date: 20171116
  Receipt Date: 20171116
  Transmission Date: 20180321
  Serious: No
  Sender: FDA-Public Use
  Company Number: US-ALLERGAN-1710068US

PATIENT
  Sex: Female

DRUGS (1)
  1. DARIFENACIN - BP [Suspect]
     Active Substance: DARIFENACIN
     Indication: BLADDER DISORDER
     Dosage: 7.5 MG, QD
     Route: 065
     Dates: start: 201701

REACTIONS (1)
  - Vision blurred [Unknown]

NARRATIVE: CASE EVENT DATE: 201702
